FAERS Safety Report 7828853-5 (Version None)
Quarter: 2011Q4

REPORT INFORMATION
  Report Type: 
  Country: None (occurrence: None)
  Receive Date: 20111020
  Receipt Date: 20111014
  Transmission Date: 20120403
  Serious: Yes (Other)
  Sender: FDA-Public Use
  Company Number: CHPA2011US14186

PATIENT
  Age: 85 Year
  Sex: Female

DRUGS (2)
  1. VOLTAREN [Suspect]
     Indication: ARTHRITIS
     Dosage: 1/8 OF AN INCH, UNK
     Route: 061
  2. VOLTAREN [Suspect]
     Indication: MUSCLE STRAIN

REACTIONS (6)
  - THERAPEUTIC RESPONSE UNEXPECTED [None]
  - EXPIRED DRUG ADMINISTERED [None]
  - DRUG ADMINISTERED AT INAPPROPRIATE SITE [None]
  - UNDERDOSE [None]
  - HIP SURGERY [None]
  - OFF LABEL USE [None]
